FAERS Safety Report 23706379 (Version 1)
Quarter: 2024Q2

REPORT INFORMATION
  Report Type: Spontaneous
  Country: US (occurrence: US)
  Receive Date: 20240404
  Receipt Date: 20240404
  Transmission Date: 20240716
  Serious: Yes (Other)
  Sender: FDA-Public Use
  Company Number: US-ENDO-CASE-0042873

PATIENT
  Sex: Female

DRUGS (24)
  1. PERCOCET [Suspect]
     Active Substance: ACETAMINOPHEN\OXYCODONE HYDROCHLORIDE
  2. ACETAMINOPHEN\OXYCODONE HYDROCHLORIDE [Suspect]
     Active Substance: ACETAMINOPHEN\OXYCODONE HYDROCHLORIDE
  3. METHADONE HYDROCHLORIDE [Suspect]
     Active Substance: METHADONE HYDROCHLORIDE
  4. TRAMADOL HYDROCHLORIDE [Suspect]
     Active Substance: TRAMADOL HYDROCHLORIDE
  5. OPANA ER [Suspect]
     Active Substance: OXYMORPHONE HYDROCHLORIDE
  6. BUPRENORPHINE HYDROCHLORIDE [Suspect]
     Active Substance: BUPRENORPHINE HYDROCHLORIDE
  7. ACETAMINOPHEN\HYDROCODONE BITARTRATE [Suspect]
     Active Substance: ACETAMINOPHEN\HYDROCODONE BITARTRATE
  8. TRAMADOL HYDROCHLORIDE [Suspect]
     Active Substance: TRAMADOL HYDROCHLORIDE
  9. METHADONE HYDROCHLORIDE [Suspect]
     Active Substance: METHADONE HYDROCHLORIDE
  10. MORPHINE SULFATE [Suspect]
     Active Substance: MORPHINE SULFATE
  11. ENDOCET [Suspect]
     Active Substance: ACETAMINOPHEN\OXYCODONE HYDROCHLORIDE
  12. DARVOCET [Suspect]
     Active Substance: ACETAMINOPHEN\PROPOXYPHENE HYDROCHLORIDE
  13. BELBUCA [Suspect]
     Active Substance: BUPRENORPHINE HYDROCHLORIDE
  14. DEPODUR [Suspect]
     Active Substance: MORPHINE SULFATE
  15. OPANA [Suspect]
     Active Substance: OXYMORPHONE HYDROCHLORIDE
  16. FENTANYL CITRATE [Suspect]
     Active Substance: FENTANYL CITRATE
  17. DARVON [Suspect]
     Active Substance: PROPOXYPHENE HYDROCHLORIDE
  18. DARVON-N [Suspect]
     Active Substance: PROPOXYPHENE NAPSYLATE
  19. ACETAMINOPHEN AND CODEINE [Suspect]
     Active Substance: ACETAMINOPHEN\CODEINE PHOSPHATE
  20. HYDROCODONE BITARTRATE\IBUPROFEN [Suspect]
     Active Substance: HYDROCODONE BITARTRATE\IBUPROFEN
  21. OXYMORPHONE HYDROCHLORIDE [Suspect]
     Active Substance: OXYMORPHONE HYDROCHLORIDE
  22. MORPHINE SULFATE [Suspect]
     Active Substance: MORPHINE SULFATE
  23. HYDROCODONE POLISTIREX AND CHLORPHENIRAMINE POLISTIREX [Suspect]
     Active Substance: CHLORPHENIRAMINE MALEATE\HYDROCODONE BITARTRATE
  24. IBUDONE [Suspect]
     Active Substance: HYDROCODONE BITARTRATE\IBUPROFEN

REACTIONS (2)
  - Overdose [Unknown]
  - Dependence [Unknown]
